FAERS Safety Report 23088509 (Version 1)
Quarter: 2023Q4

REPORT INFORMATION
  Report Type: Spontaneous
  Country: DE (occurrence: DE)
  Receive Date: 20231020
  Receipt Date: 20231020
  Transmission Date: 20240109
  Serious: Yes (Other)
  Sender: FDA-Public Use
  Company Number: None

PATIENT

DRUGS (2)
  1. PREGABALIN [Suspect]
     Active Substance: PREGABALIN
     Indication: Pain
     Dosage: PREVIOUSLY RECEIVED 25MG 0-0-1
     Route: 048
     Dates: end: 20230921
  2. PREGABALIN [Suspect]
     Active Substance: PREGABALIN
     Dosage: 25MG 1-0-2
     Route: 048
     Dates: start: 20230922, end: 20230926

REACTIONS (7)
  - Loss of consciousness [Recovering/Resolving]
  - Hypophagia [Recovered/Resolved]
  - Choreoathetosis [Recovering/Resolving]
  - Bedridden [Recovered/Resolved]
  - Disturbance in attention [Recovering/Resolving]
  - Dysphagia [Recovering/Resolving]
  - Muscle twitching [Recovering/Resolving]

NARRATIVE: CASE EVENT DATE: 20230901
